FAERS Safety Report 6703543-0 (Version None)
Quarter: 2010Q2

REPORT INFORMATION
  Report Type: 
  Country: None (occurrence: None)
  Receive Date: 20100430
  Receipt Date: 20100423
  Transmission Date: 20101027
  Serious: Yes (Other)
  Sender: FDA-Public Use
  Company Number: PHHY2010US25159

PATIENT
  Sex: Female

DRUGS (2)
  1. TOBI [Suspect]
     Indication: PNEUMONIA
     Dosage: UNK
     Dates: start: 20100413, end: 20100413
  2. TOBI [Suspect]
     Dosage: UNK
     Dates: start: 20100419

REACTIONS (3)
  - COUGH [None]
  - VIRAL INFECTION [None]
  - VOMITING [None]
